FAERS Safety Report 4342182-6 (Version None)
Quarter: 2004Q2

REPORT INFORMATION
  Report Type: 
  Country: None (occurrence: None)
  Receive Date: 20040409
  Receipt Date: 20031130
  Transmission Date: 20050107
  Serious: No
  Sender: FDA-Public Use
  Company Number: 03P-163-0243055-00

PATIENT
  Age: 23 Year
  Sex: Male
  Weight: 72.5755 kg

DRUGS (4)
  1. DEPAKOTE [Suspect]
     Indication: CONVULSION
     Dosage: 250 MG, 3 IN 1 D, PER ORAL; 250 MG, 4 IN 1 D, PER ORAL
     Route: 048
     Dates: start: 19980101, end: 20030701
  2. DEPAKOTE [Suspect]
     Indication: CONVULSION
     Dosage: 250 MG, 3 IN 1 D, PER ORAL; 250 MG, 4 IN 1 D, PER ORAL
     Route: 048
     Dates: start: 20030701
  3. CENTRUM [Concomitant]
  4. PROPRANOLOL [Concomitant]

REACTIONS (5)
  - CONVULSION [None]
  - DRUG LEVEL BELOW THERAPEUTIC [None]
  - FATIGUE [None]
  - HEADACHE [None]
  - VOMITING [None]
